FAERS Safety Report 23960251 (Version 1)
Quarter: 2024Q2

REPORT INFORMATION
  Report Type: Spontaneous
  Country: AT (occurrence: AT)
  Receive Date: 20240611
  Receipt Date: 20240611
  Transmission Date: 20240716
  Serious: Yes (Other)
  Sender: FDA-Public Use
  Company Number: AT-ASTELLAS-2024US014752

PATIENT
  Age: 59 Year
  Sex: Male

DRUGS (7)
  1. PEMBROLIZUMAB [Suspect]
     Active Substance: PEMBROLIZUMAB
     Indication: Product used for unknown indication
     Dosage: UNK UNK, UNKNOWN FREQ.
     Route: 065
     Dates: start: 20230801
  2. PEMBROLIZUMAB [Suspect]
     Active Substance: PEMBROLIZUMAB
     Dosage: UNK UNK, UNKNOWN FREQ. (2ND CYCLE DAY 1, PEMBRO ONLY)
     Route: 065
  3. ENFORTUMAB VEDOTIN [Suspect]
     Active Substance: ENFORTUMAB VEDOTIN
     Indication: Product used for unknown indication
     Dosage: UNK, CYCLIC (6 CYCLE 85% )
     Route: 065
  4. ENFORTUMAB VEDOTIN [Suspect]
     Active Substance: ENFORTUMAB VEDOTIN
     Dosage: UNK,  CYCLIC (3-5 CYCLE FULL DOSE)
     Route: 065
  5. ENFORTUMAB VEDOTIN [Suspect]
     Active Substance: ENFORTUMAB VEDOTIN
     Dosage: UNK, CYCLIC (2ND CYCLE DAY 8 RE START, 85% DOSE REDUCTION)
     Route: 065
  6. ENFORTUMAB VEDOTIN [Suspect]
     Active Substance: ENFORTUMAB VEDOTIN
     Dosage: UNK, CYCLIC (LAST DOSE, 6 CYCLES)
     Route: 065
     Dates: start: 20231207, end: 20231207
  7. ENFORTUMAB VEDOTIN [Suspect]
     Active Substance: ENFORTUMAB VEDOTIN
     Dosage: UNK,CYCLIC (FULL DOSE)
     Route: 065
     Dates: start: 20230801

REACTIONS (5)
  - Polyneuropathy [Unknown]
  - Abdominal wall abscess [Unknown]
  - Off label use [Unknown]
  - Skin toxicity [Unknown]
  - Product use issue [Unknown]

NARRATIVE: CASE EVENT DATE: 20230801
